FAERS Safety Report 26168939 (Version 1)
Quarter: 2025Q4

REPORT INFORMATION
  Report Type: Spontaneous
  Country: US (occurrence: US)
  Receive Date: 20251217
  Receipt Date: 20251217
  Transmission Date: 20260118
  Serious: No
  Sender: PACIRA
  Company Number: US-ORG100016242-2025000386

PATIENT
  Age: 65 Year
  Sex: Female
  Weight: 64 kg

DRUGS (4)
  1. EXPAREL [Suspect]
     Active Substance: BUPIVACAINE
     Indication: Nerve block
     Route: 065
     Dates: start: 20250922, end: 20250922
  2. BUPIVACAINE [Suspect]
     Active Substance: BUPIVACAINE
     Indication: Nerve block
     Dosage: 50MG, RIGHT SHOULDER
     Route: 065
     Dates: start: 20250922, end: 20250922
  3. BUPIVACAINE [Suspect]
     Active Substance: BUPIVACAINE
     Indication: Nerve block
     Dosage: 55 MG
     Route: 065
     Dates: start: 20250922, end: 20250922
  4. DECADRON [Suspect]
     Active Substance: DEXAMETHASONE
     Indication: Arthralgia
     Dosage: 4MG, RIGHT SHOULDER
     Route: 065
     Dates: start: 20250922, end: 20250922

REACTIONS (3)
  - Inappropriate schedule of product administration [Unknown]
  - Procedural pain [Recovered/Resolved]
  - Labelled drug-drug interaction medication error [Unknown]

NARRATIVE: CASE EVENT DATE: 20250922
